FAERS Safety Report 16445542 (Version 1)
Quarter: 2019Q2

REPORT INFORMATION
  Report Type: Spontaneous
  Country: US (occurrence: US)
  Receive Date: 20190618
  Receipt Date: 20190618
  Transmission Date: 20190711
  Serious: No
  Sender: FDA-Public Use
  Company Number: US-PFIZER INC-2019254856

PATIENT
  Age: 53 Year
  Sex: Female
  Weight: 93.89 kg

DRUGS (2)
  1. CHANTIX [Suspect]
     Active Substance: VARENICLINE TARTRATE
     Indication: SMOKING CESSATION THERAPY
     Dosage: UNK, 1X/DAY (SHE HAD TO TAKE 1ST WEEK ONCE A DAY THEN AFTER DIFFERENT COLOR PILL TWICE A DAY)
  2. CHANTIX [Suspect]
     Active Substance: VARENICLINE TARTRATE
     Dosage: UNK, 2X/DAY (SHE HAD TO TAKE 1ST WEEK ONCE A DAY THEN AFTER DIFFERENT COLOR PILL TWICE A DAY)

REACTIONS (1)
  - Drug ineffective [Unknown]

NARRATIVE: CASE EVENT DATE: 2016
